FAERS Safety Report 21555951 (Version 9)
Quarter: 2023Q1

REPORT INFORMATION
  Report Type: Report from Study
  Country: US (occurrence: US)
  Receive Date: 20221104
  Receipt Date: 20230216
  Transmission Date: 20230417
  Serious: No
  Sender: FDA-Public Use
  Company Number: US-002147023-NVSC2022US246041

PATIENT
  Age: 10 Year
  Sex: Female

DRUGS (2)
  1. OMNITROPE [Suspect]
     Active Substance: SOMATROPIN
     Indication: Short stature
     Dosage: 1.5 MG, QD
     Route: 058
     Dates: start: 20221025
  2. OMNITROPE [Suspect]
     Active Substance: SOMATROPIN
     Dosage: 1.5 MG, QD
     Route: 058

REACTIONS (2)
  - Injection site pain [Unknown]
  - Device breakage [Unknown]

NARRATIVE: CASE EVENT DATE: 20221025
